FAERS Safety Report 8924730 (Version 2)
Quarter: 2013Q3

REPORT INFORMATION
  Report Type: Spontaneous
  Country: US (occurrence: US)
  Receive Date: 20121126
  Receipt Date: 20130806
  Transmission Date: 20140515
  Serious: Yes (Death)
  Sender: FDA-Public Use
  Company Number: US-PFIZER INC-2012292960

PATIENT
  Age: 76 Year
  Sex: Female

DRUGS (4)
  1. XALKORI [Suspect]
     Indication: LUNG NEOPLASM MALIGNANT
     Dosage: 250 MG, 1 CAPSULE, TWICE A DAY)
     Route: 048
  2. LASIX [Concomitant]
     Dosage: 20 MG, UNK
  3. ONDANSETRON [Concomitant]
     Dosage: 8 MG, UNK
  4. LATANOPROST [Concomitant]
     Dosage: 0.005 %, UNK

REACTIONS (4)
  - Death [Fatal]
  - Nausea [Unknown]
  - Chills [Unknown]
  - Feeling cold [Unknown]
